FAERS Safety Report 5066072-9 (Version None)
Quarter: 2006Q3

REPORT INFORMATION
  Report Type: 
  Country: None (occurrence: None)
  Receive Date: 20060726
  Receipt Date: 20060718
  Transmission Date: 20061208
  Serious: Yes (Other)
  Sender: FDA-Public Use
  Company Number: 2006077777

PATIENT
  Age: 42 Year
  Sex: Male
  Weight: 133.8111 kg

DRUGS (7)
  1. NICOTROL [Suspect]
     Indication: SMOKING CESSATION THERAPY
     Dosage: 3 TO 4 CARTRIDGES PER DAY, INHALATION
     Route: 055
     Dates: start: 20060408, end: 20060414
  2. THOMAPYRIN N (ACETYLSALICYLIC ACID, CAFFEINE, PARACETAMOL) [Concomitant]
  3. LAMOTRIGINE [Concomitant]
  4. MOMETASONE FUROATE [Concomitant]
  5. VALPROATE SODIUM [Concomitant]
  6. LEVETIRACETAM [Concomitant]
  7. IBUPROFEN [Concomitant]

REACTIONS (6)
  - ANTICONVULSANT DRUG LEVEL DECREASED [None]
  - CONDITION AGGRAVATED [None]
  - CONVULSION [None]
  - DIZZINESS [None]
  - EYE MOVEMENT DISORDER [None]
  - MIGRAINE [None]
